FAERS Safety Report 6618444-6 (Version None)
Quarter: 2010Q1

REPORT INFORMATION
  Report Type: 
  Country: None (occurrence: None)
  Receive Date: 20100308
  Receipt Date: 20100225
  Transmission Date: 20100710
  Serious: Yes (Death, Hospitalization, Other)
  Sender: FDA-Public Use
  Company Number: JP-JNJFOC-20100111162

PATIENT
  Sex: Female
  Weight: 45 kg

DRUGS (11)
  1. DOXIL [Suspect]
     Indication: OVARIAN CANCER RECURRENT
     Route: 042
  2. KYTRIL [Concomitant]
     Indication: PROPHYLAXIS
     Route: 041
  3. DECADRON [Concomitant]
     Indication: PROPHYLAXIS
     Route: 042
  4. RINDERON [Concomitant]
     Route: 042
  5. RINDERON [Concomitant]
     Route: 048
  6. GASTER [Concomitant]
     Indication: VOMITING
     Route: 042
  7. GASTER [Concomitant]
     Route: 042
  8. PRIMPERAN [Concomitant]
     Route: 042
  9. PRIMPERAN [Concomitant]
     Route: 048
  10. GASTER D [Concomitant]
     Route: 048
  11. AZUNOL [Concomitant]
     Indication: PROPHYLAXIS
     Route: 049

REACTIONS (3)
  - INTESTINAL OBSTRUCTION [None]
  - NEUTROPHIL COUNT DECREASED [None]
  - OVARIAN CANCER [None]
